FAERS Safety Report 19771275 (Version 4)
Quarter: 2022Q3

REPORT INFORMATION
  Report Type: Report from Study
  Country: FR (occurrence: FR)
  Receive Date: 20210901
  Receipt Date: 20220805
  Transmission Date: 20221027
  Serious: Yes (Hospitalization, Other)
  Sender: FDA-Public Use
  Company Number: NVSC2021FR177399

PATIENT
  Age: 62 Year
  Sex: Female
  Weight: 79 kg

DRUGS (6)
  1. RIBOCICLIB [Suspect]
     Active Substance: RIBOCICLIB
     Indication: HER2 negative breast cancer
     Dosage: 400 MG (2 TABLETS PER DAY)
     Route: 048
     Dates: start: 20200810
  2. RIBOCICLIB [Suspect]
     Active Substance: RIBOCICLIB
     Dosage: 400 MG (2 TABLETS PER DAY)
     Route: 048
     Dates: start: 20210616, end: 20210704
  3. RIBOCICLIB [Suspect]
     Active Substance: RIBOCICLIB
     Dosage: 400 MG (2 TABLETS PER DAY)
     Route: 048
     Dates: start: 20210722, end: 20210806
  4. LETROZOLE [Suspect]
     Active Substance: LETROZOLE
     Indication: HER2 negative breast cancer
     Dosage: 2.5 MG (1 TABLET PER DAY)
     Route: 048
     Dates: start: 20200810, end: 20210418
  5. LETROZOLE [Suspect]
     Active Substance: LETROZOLE
     Dosage: 2.5 MG (1 TABLET PER DAY)
     Route: 048
     Dates: start: 20210420, end: 20210716
  6. LETROZOLE [Suspect]
     Active Substance: LETROZOLE
     Dosage: 2.5 MG (1 TABLET PER DAY)
     Route: 048
     Dates: start: 20210722

REACTIONS (2)
  - Pulmonary embolism [Recovered/Resolved]
  - Peripheral artery thrombosis [Recovered/Resolved]

NARRATIVE: CASE EVENT DATE: 20210716
